FAERS Safety Report 8115854-5 (Version None)
Quarter: 2012Q1

REPORT INFORMATION
  Report Type: 
  Country: None (occurrence: None)
  Receive Date: 20120206
  Receipt Date: 20120126
  Transmission Date: 20120608
  Serious: Yes (Other)
  Sender: FDA-Public Use
  Company Number: CA-JNJFOC-20120201523

PATIENT
  Sex: Male
  Weight: 75 kg

DRUGS (6)
  1. REMICADE [Suspect]
     Indication: PSORIATIC ARTHROPATHY
     Route: 042
     Dates: start: 20100701
  2. ACETAMINOPHEN [Concomitant]
     Indication: PREMEDICATION
     Route: 048
  3. SOLU-CORTEF [Concomitant]
     Indication: PREMEDICATION
     Route: 042
  4. CYCLOSPORINE [Concomitant]
     Route: 048
  5. BENADRYL [Concomitant]
     Indication: PREMEDICATION
     Route: 042
  6. DOVOBET [Concomitant]
     Route: 065

REACTIONS (4)
  - INFUSION RELATED REACTION [None]
  - DISTURBANCE IN ATTENTION [None]
  - FLUSHING [None]
  - HYPOTENSION [None]
